FAERS Safety Report 6716129-9 (Version None)
Quarter: 2010Q2

REPORT INFORMATION
  Report Type: 
  Country: None (occurrence: None)
  Receive Date: 20100507
  Receipt Date: 20100429
  Transmission Date: 20101027
  Serious: Yes (Other)
  Sender: FDA-Public Use
  Company Number: US-AMGEN-QUU409461

PATIENT
  Sex: Female

DRUGS (2)
  1. NEUPOGEN [Suspect]
     Indication: NEUTROPENIA
  2. UNSPECIFIED ANTIBIOTIC [Concomitant]

REACTIONS (5)
  - CHEST DISCOMFORT [None]
  - DERMATITIS ALLERGIC [None]
  - EAR PAIN [None]
  - HYPERSENSITIVITY [None]
  - SUFFOCATION FEELING [None]
